FAERS Safety Report 4402957-1 (Version None)
Quarter: 2004Q3

REPORT INFORMATION
  Report Type: 
  Country: None (occurrence: None)
  Receive Date: 20040721
  Receipt Date: 20030709
  Transmission Date: 20050211
  Serious: No
  Sender: FDA-Public Use
  Company Number: US-GLAXOSMITHKLINE-A0416599A

PATIENT
  Age: 61 Year
  Sex: Female

DRUGS (5)
  1. IMITREX [Suspect]
     Indication: MIGRAINE
     Dosage: 100MG AS REQUIRED
     Route: 048
     Dates: start: 20030705
  2. PREMPRO [Concomitant]
  3. OMEGA 3 FISH OIL [Concomitant]
  4. VITAMIN E [Concomitant]
     Dosage: 400IU UNKNOWN
  5. CALCIUM [Concomitant]
     Dosage: 1000MG UNKNOWN
     Route: 065

REACTIONS (2)
  - DRUG INEFFECTIVE [None]
  - SOMNOLENCE [None]
